FAERS Safety Report 9739273 (Version 1)
Quarter: 2013Q4

REPORT INFORMATION
  Report Type: Spontaneous
  Country: US (occurrence: US)
  Receive Date: 20131209
  Receipt Date: 20131209
  Transmission Date: 20140711
  Serious: No
  Sender: FDA-Public Use
  Company Number: US-PFIZER INC-2013347058

PATIENT
  Age: 47 Year
  Sex: Male

DRUGS (2)
  1. TIKOSYN [Suspect]
     Dosage: 500 UG, 2X/DAY
     Route: 048
  2. DOXYCYCLINE HYCLATE [Interacting]
     Dosage: 100 MG, 2X/DAY
     Route: 048
     Dates: start: 20131113, end: 20131114

REACTIONS (1)
  - Drug interaction [Unknown]
